FAERS Safety Report 7424991-X (Version None)
Quarter: 2011Q2

REPORT INFORMATION
  Report Type: 
  Country: None (occurrence: None)
  Receive Date: 20110419
  Receipt Date: 20110407
  Transmission Date: 20111010
  Serious: Yes (Hospitalization, Other)
  Sender: FDA-Public Use
  Company Number: BR-BAYER-201014507LA

PATIENT
  Age: 28 Year
  Sex: Female

DRUGS (2)
  1. BETAFERON [Suspect]
     Indication: MULTIPLE SCLEROSIS
     Dosage: BETAJECT
     Route: 058
     Dates: start: 20080518, end: 20100420
  2. BETAFERON [Suspect]
     Dosage: BETAJECT
     Route: 058
     Dates: start: 20100522

REACTIONS (6)
  - PAIN [None]
  - ERYTHEMA [None]
  - FALLOPIAN TUBE PERFORATION [None]
  - ECTOPIC PREGNANCY [None]
  - TONSILLITIS [None]
  - ANAEMIA [None]
